FAERS Safety Report 7121592-8 (Version None)
Quarter: 2010Q4

REPORT INFORMATION
  Report Type: 
  Country: None (occurrence: None)
  Receive Date: 20101124
  Receipt Date: 20101111
  Transmission Date: 20110411
  Serious: Yes (Hospitalization, Other)
  Sender: FDA-Public Use
  Company Number: US-ELI_LILLY_AND_COMPANY-US201011003703

PATIENT
  Sex: Female

DRUGS (6)
  1. FORTEO [Suspect]
     Indication: OSTEOPOROSIS
     Dosage: 20 UG, DAILY (1/D)
  2. SYNTHROID [Concomitant]
  3. LAMICTAL [Concomitant]
     Indication: CONVULSION
  4. FOLIC ACID [Concomitant]
  5. CALCIUM [Concomitant]
  6. IRON [Concomitant]

REACTIONS (4)
  - BACK PAIN [None]
  - KNEE ARTHROPLASTY [None]
  - SPINAL FRACTURE [None]
  - VITAMIN D DECREASED [None]
